FAERS Safety Report 20711320 (Version 5)
Quarter: 2022Q2

REPORT INFORMATION
  Report Type: Spontaneous
  Country: EG (occurrence: None)
  Receive Date: 20220414
  Receipt Date: 20220623
  Transmission Date: 20220721
  Serious: Yes (Death, Life-Threatening, Hospitalization, Other)
  Sender: FDA-Public Use
  Company Number: 2022A145942

PATIENT
  Age: 42 Year
  Sex: Male
  Weight: 54 kg

DRUGS (14)
  1. EVUSHELD [Suspect]
     Active Substance: CILGAVIMAB\TIXAGEVIMAB
     Route: 030
     Dates: start: 20220409
  2. AMINOPHYLLINE [Concomitant]
     Active Substance: AMINOPHYLLINE
  3. PULMICORT TURBUHALER [Concomitant]
     Active Substance: BUDESONIDE
     Indication: Respiratory symptom
  4. ATROVENT [Concomitant]
     Active Substance: IPRATROPIUM BROMIDE
     Indication: Respiratory symptom
  5. GEMCITABINE+ CISPLATIN [Concomitant]
  6. LEVOFLOXACIN [Concomitant]
     Active Substance: LEVOFLOXACIN
  7. MEGAMOX [Concomitant]
  8. OMEPRAZOLE [Concomitant]
     Active Substance: OMEPRAZOLE
  9. ACETAMINOPHEN [Concomitant]
     Active Substance: ACETAMINOPHEN
  10. CONVENTIN [Concomitant]
  11. BENFOTIAMINE\CYANOCOBALAMIN\PYRIDOXINE HYDROCHLORIDE [Concomitant]
     Active Substance: BENFOTIAMINE\CYANOCOBALAMIN\PYRIDOXINE HYDROCHLORIDE
  12. MICONAZ [Concomitant]
  13. TRAMADOL [Concomitant]
     Active Substance: TRAMADOL
  14. DUPHALAC [Concomitant]
     Active Substance: LACTULOSE

REACTIONS (4)
  - Death [Fatal]
  - Anaphylactic shock [Recovered/Resolved]
  - Pulmonary oedema [Unknown]
  - Coma [Unknown]

NARRATIVE: CASE EVENT DATE: 20220409
